FAERS Safety Report 6193546-X (Version None)
Quarter: 2009Q2

REPORT INFORMATION
  Report Type: 
  Country: None (occurrence: None)
  Receive Date: 20090514
  Receipt Date: 20090430
  Transmission Date: 20091009
  Serious: Yes (Death)
  Sender: FDA-Public Use
  Company Number: 000716

PATIENT
  Age: 64 Year
  Sex: Female

DRUGS (7)
  1. PROSTAVASIN /00501501/ (PROSTAVASIN) [Suspect]
     Indication: PERIPHERAL ARTERIAL OCCLUSIVE DISEASE
     Dosage: (1 VIAL ONCE INTRA-ARTERIAL)
     Route: 013
  2. PROSTAVASIN /00501501/ (PROSTAVASIN) [Suspect]
     Dosage: SEE IMAGE
     Route: 042
  3. PLETAL [Suspect]
     Dosage: (100 MG BID)
  4. CLEXANE (CLEXANE) (NOT SPECIFIED) [Suspect]
  5. HEPARIN [Suspect]
     Dosage: (5000IE ONCE)
  6. ASS (ASS) (NOT SPECIFIED) [Suspect]
     Dosage: (100 MG ONCE) ; (100 MG QD) ; (100MG DAILY)
  7. CLOPIDOGREL [Suspect]
     Dosage: 75 MG ONCE

REACTIONS (3)
  - CARDIAC DEATH [None]
  - CARDIAC DISORDER [None]
  - MYOCARDIAL INFARCTION [None]
